FAERS Safety Report 24071298 (Version 1)
Quarter: 2024Q3

REPORT INFORMATION
  Report Type: Report from Study
  Country: DE (occurrence: DE)
  Receive Date: 20240710
  Receipt Date: 20240710
  Transmission Date: 20241016
  Serious: No
  Sender: ROCHE
  Company Number: DE-ROCHE-3289291

PATIENT
  Age: 43 Year
  Sex: Male
  Weight: 71.0 kg

DRUGS (1)
  1. EVRYSDI [Suspect]
     Active Substance: RISDIPLAM
     Indication: Spinal muscular atrophy
     Dosage: LAST DOSE ON 02/FEB/2023, 17/OCT/2023, OCCLUSIVE DRESSING TECHNIQUE?LAST DOSE 14/JUN/2023
     Route: 048
     Dates: start: 20220118, end: 20240403

REACTIONS (5)
  - Constipation [Not Recovered/Not Resolved]
  - Headache [Recovered/Resolved]
  - Cough [Recovered/Resolved]
  - Dizziness [Recovered/Resolved]
  - Hypoaesthesia [Recovered/Resolved]

NARRATIVE: CASE EVENT DATE: 20220523
